FAERS Safety Report 10015824 (Version 2)
Quarter: 2014Q2

REPORT INFORMATION
  Report Type: Spontaneous
  Country: US (occurrence: US)
  Receive Date: 20140317
  Receipt Date: 20140415
  Transmission Date: 20141212
  Serious: Yes (Hospitalization, Other)
  Sender: FDA-Public Use
  Company Number: US-GLAXOSMITHKLINE-A1064984A

PATIENT
  Age: 45 Year
  Sex: Female
  Weight: 65 kg

DRUGS (4)
  1. WELLBUTRIN [Suspect]
     Indication: DEPRESSION
     Dosage: 250MG PER DAY
     Route: 065
     Dates: end: 20140107
  2. AMPYRA [Suspect]
     Indication: GAIT DISTURBANCE
     Dosage: 10MG TWICE PER DAY
     Route: 048
     Dates: start: 20100604, end: 20131123
  3. MINOCYCLINE [Concomitant]
     Indication: ACNE
     Dosage: 100MCG TWICE PER DAY
  4. SYNTHROID [Concomitant]
     Indication: THYROID DISORDER

REACTIONS (3)
  - Accidental overdose [Recovered/Resolved]
  - Convulsion [Recovered/Resolved]
  - Back pain [Unknown]
